FAERS Safety Report 9177808 (Version 1)
Quarter: 2012Q4

REPORT INFORMATION
  Report Type: 
  Country: US (occurrence: US)
  Receive Date: 20121010
  Receipt Date: 20121010
  Transmission Date: 20130627
  Serious: Yes (Death, Other)
  Sender: FDA-Public Use
  Company Number: US-RB-045322-12

PATIENT
  Age: 27 Year
  Sex: Male

DRUGS (1)
  1. SUBOXONE TABLET [Suspect]
     Indication: PRODUCT USED FOR UNKNOWN INDICATION
     Dosage: Dosage details not provided
     Route: 048

REACTIONS (6)
  - Completed suicide [Fatal]
  - Coma [Fatal]
  - Respiratory arrest [Fatal]
  - Blood creatinine increased [Fatal]
  - Hypotension [Fatal]
  - Tachycardia [Fatal]
